FAERS Safety Report 4834789-4 (Version None)
Quarter: 2005Q4

REPORT INFORMATION
  Report Type: 
  Country: None (occurrence: None)
  Receive Date: 20051114
  Receipt Date: 20051031
  Transmission Date: 20060501
  Serious: Yes (Other)
  Sender: FDA-Public Use
  Company Number: USA040669148

PATIENT
  Age: 78 Year
  Sex: Male

DRUGS (9)
  1. FORTEO [Suspect]
     Indication: OSTEOPOROSIS
     Dosage: 20 UGDAY
     Dates: start: 20040512
  2. PROPRANOLOL [Concomitant]
  3. PROSCAR [Concomitant]
  4. RANITIDINE [Concomitant]
  5. CALCIUM GLUCONATE [Concomitant]
  6. VITAMIN D [Concomitant]
  7. SPIRONOLACTONE [Concomitant]
  8. MAGNESIUM CHLORIDE [Concomitant]
  9. AXID [Concomitant]

REACTIONS (9)
  - ERYTHEMA [None]
  - EYE HAEMORRHAGE [None]
  - EYELID MARGIN CRUSTING [None]
  - FEELING ABNORMAL [None]
  - HAEMATURIA [None]
  - NEPHROLITHIASIS [None]
  - PHARMACEUTICAL PRODUCT COMPLAINT [None]
  - STRESS [None]
  - TREATMENT NONCOMPLIANCE [None]
